FAERS Safety Report 10436819 (Version 2)
Quarter: 2014Q3

REPORT INFORMATION
  Report Type: Spontaneous
  Country: US (occurrence: US)
  Receive Date: 20140908
  Receipt Date: 20140908
  Transmission Date: 20150326
  Serious: No
  Sender: FDA-Public Use
  Company Number: US-BRISTOL-MYERS SQUIBB COMPANY-20259172

PATIENT
  Age: 54 Year
  Sex: Female

DRUGS (6)
  1. ABILIFY [Suspect]
     Active Substance: ARIPIPRAZOLE
     Indication: DEPRESSION
     Dosage: DOSE VALUE:2MG,THEN 1MG THEN 1/2 MG,THEN 1/6 PILL
  2. SIMVASTATIN. [Concomitant]
     Active Substance: SIMVASTATIN
  3. ABILIFY [Suspect]
     Active Substance: ARIPIPRAZOLE
     Indication: POST-TRAUMATIC STRESS DISORDER
     Dosage: DOSE VALUE:2MG,THEN 1MG THEN 1/2 MG,THEN 1/6 PILL
  4. CONCERTA [Concomitant]
     Active Substance: METHYLPHENIDATE HYDROCHLORIDE
  5. PROZAC [Concomitant]
     Active Substance: FLUOXETINE HYDROCHLORIDE
     Indication: EYE DISORDER
  6. CYTOMEL [Concomitant]
     Active Substance: LIOTHYRONINE SODIUM
     Dosage: 1/2 TABLET OR 12.5MCG,6 DAYS A WEEK.

REACTIONS (4)
  - Weight increased [Unknown]
  - Weight decreased [Unknown]
  - Wrong technique in drug usage process [Unknown]
  - Intraocular pressure increased [Unknown]
